FAERS Safety Report 15133769 (Version 1)
Quarter: 2018Q3

REPORT INFORMATION
  Report Type: Spontaneous
  Country: US (occurrence: US)
  Receive Date: 20180615
  Receipt Date: 20180615
  Transmission Date: 20181010
  Serious: No
  Sender: FDA-Public Use
  Company Number: None

PATIENT
  Age: 43 Year
  Sex: Female
  Weight: 57.61 kg

DRUGS (3)
  1. SYNTHROID [Suspect]
     Active Substance: LEVOTHYROXINE SODIUM
  2. LEVOTHYROXINE 88MCG [Suspect]
     Active Substance: LEVOTHYROXINE
     Indication: PAPILLARY THYROID CANCER
     Route: 048
  3. LEVOTHYROXINE 88MCG [Suspect]
     Active Substance: LEVOTHYROXINE
     Indication: PREOPERATIVE CARE
     Route: 048

REACTIONS (1)
  - Hyperthyroidism [None]
